FAERS Safety Report 8093935-2 (Version None)
Quarter: 2012Q1

REPORT INFORMATION
  Report Type: 
  Country: None (occurrence: None)
  Receive Date: 20120130
  Receipt Date: 20120124
  Transmission Date: 20120608
  Serious: Yes (Hospitalization)
  Sender: FDA-Public Use
  Company Number: GB-US-EMD SERONO, INC.-7108685

PATIENT
  Sex: Female

DRUGS (2)
  1. REBIF [Suspect]
     Dosage: DOSAGE RE STARTED
  2. REBIF [Suspect]
     Indication: PRODUCT USED FOR UNKNOWN INDICATION
     Route: 058
     Dates: start: 20030707

REACTIONS (2)
  - URINARY TRACT INFECTION [None]
  - INJECTION SITE ERYTHEMA [None]
